FAERS Safety Report 8302954-X (Version None)
Quarter: 2012Q2

REPORT INFORMATION
  Report Type: 
  Country: None (occurrence: None)
  Receive Date: 20120420
  Receipt Date: 20120309
  Transmission Date: 20120825
  Serious: Yes (Death)
  Sender: FDA-Public Use
  Company Number: PHHY2011VE43360

PATIENT
  Sex: Female

DRUGS (14)
  1. VITAMIN A [Concomitant]
     Dosage: 0.320 G, UNK
  2. VITAMIN E [Concomitant]
     Dosage: 0.667 G, UNK
  3. STILBAMIDINE [Concomitant]
     Dosage: 300 MG, UNK
  4. ZOLEDRONOC ACID [Suspect]
     Indication: OSTEOPOROSIS
     Dosage: 5 MG, ONCE A YEAR
     Route: 042
     Dates: start: 20081113
  5. ZINC SULFATE [Concomitant]
     Dosage: 1 G, UNK
  6. SELENIUM [Concomitant]
     Dosage: 47 UG, UNK
  7. ZOLEDRONOC ACID [Suspect]
     Dosage: 5 MG, ONCE A YEAR
     Route: 042
     Dates: start: 20110101
  8. EXFORGE [Concomitant]
     Indication: HYPERTENSION
     Dosage: 1 DF, UNK
  9. CRESTOR [Concomitant]
     Indication: BLOOD CHOLESTEROL ABNORMAL
     Dosage: UNK UKN, UNK
  10. CHOLIPIN [Concomitant]
     Dosage: 10 MG, UNK
  11. YEAST [Concomitant]
  12. ZOLEDRONOC ACID [Suspect]
     Dosage: 5 MG, ONCE A YEAR
     Route: 042
     Dates: start: 20091101
  13. ASCORBIC ACID [Concomitant]
  14. COENZYME Q10 [Concomitant]
     Dosage: 0.667 G, UNK

REACTIONS (4)
  - BONE PAIN [None]
  - MYALGIA [None]
  - DEATH [None]
  - INFLUENZA [None]
